FAERS Safety Report 5424666-2 (Version None)
Quarter: 2007Q3

REPORT INFORMATION
  Report Type: 
  Country: None (occurrence: None)
  Receive Date: 20070824
  Receipt Date: 20070822
  Transmission Date: 20080115
  Serious: Yes (Hospitalization)
  Sender: FDA-Public Use
  Company Number: PHRM2007FR02065

PATIENT
  Age: 57 Year
  Sex: Female

DRUGS (9)
  1. LAMISIL [Suspect]
     Indication: ERYTHEMA
     Route: 061
     Dates: start: 20070702, end: 20070709
  2. LEVOTHYROXINE SODIUM [Concomitant]
     Dosage: 100 UG, QD
  3. XANAX [Concomitant]
     Dosage: 0.5 MG, BID
  4. MEPRONIZINE [Concomitant]
     Dosage: 2 DF, QD
  5. DI-ANTALVIC [Concomitant]
  6. LAMISIL [Suspect]
     Dosage: 250 MG, QD
     Route: 048
     Dates: start: 20070702, end: 20070709
  7. TERCIAN [Concomitant]
     Dosage: 25 MG, BID
  8. ESCITALOPRAM (SEROPLEX) [Concomitant]
     Dosage: 1 DF, QD
  9. ABUFENE [Concomitant]
     Dosage: 1 DF, QD

REACTIONS (6)
  - ERYTHRODERMIC PSORIASIS [None]
  - PSORIASIS [None]
  - RASH ERYTHEMATOUS [None]
  - RASH PAPULAR [None]
  - RASH PUSTULAR [None]
  - SECRETION DISCHARGE [None]
